FAERS Safety Report 4717384-7 (Version None)
Quarter: 2005Q3

REPORT INFORMATION
  Report Type: 
  Country: None (occurrence: None)
  Receive Date: 20050711
  Receipt Date: 20041122
  Transmission Date: 20060218
  Serious: No
  Sender: FDA-Public Use
  Company Number: A03200403938

PATIENT
  Age: 80 Year
  Sex: Male
  Weight: 56.6996 kg

DRUGS (1)
  1. UROXATRAL [Suspect]
     Indication: BENIGN PROSTATIC HYPERPLASIA
     Dosage: 10 MG OD - ORAL
     Route: 048
     Dates: start: 20041101

REACTIONS (2)
  - DRUG EFFECT DECREASED [None]
  - DRY MOUTH [None]
